FAERS Safety Report 6118439-5 (Version None)
Quarter: 2009Q1

REPORT INFORMATION
  Report Type: 
  Country: None (occurrence: None)
  Receive Date: 20090314
  Receipt Date: 20090219
  Transmission Date: 20090719
  Serious: No
  Sender: FDA-Public Use
  Company Number: US-ABBOTT-09P-163-0558453-00

PATIENT
  Sex: Male
  Weight: 81.72 kg

DRUGS (5)
  1. HUMIRA [Suspect]
     Indication: CROHN'S DISEASE
     Route: 058
     Dates: start: 20080101, end: 20080801
  2. HUMIRA [Suspect]
     Indication: ANKYLOSING SPONDYLITIS
     Route: 058
     Dates: start: 20080801
  3. HUMIRA [Suspect]
     Indication: ARTHRITIS
  4. LIPITOR [Concomitant]
     Indication: CARDIAC DISORDER
  5. COREG [Concomitant]
     Indication: HYPERTENSION

REACTIONS (3)
  - DIARRHOEA [None]
  - INJECTION SITE IRRITATION [None]
  - INJECTION SITE PAIN [None]
